FAERS Safety Report 7617440-X (Version None)
Quarter: 2011Q3

REPORT INFORMATION
  Report Type: 
  Country: None (occurrence: None)
  Receive Date: 20110718
  Receipt Date: 20110713
  Transmission Date: 20111222
  Serious: No
  Sender: FDA-Public Use
  Company Number: US-PFIZER INC-2011158580

PATIENT
  Sex: Female

DRUGS (2)
  1. NORVASC [Suspect]
     Indication: BLOOD PRESSURE
     Dosage: UNK
     Route: 048
  2. LISINOPRIL [Suspect]
     Indication: BLOOD PRESSURE
     Dosage: UNK

REACTIONS (1)
  - MALAISE [None]
